FAERS Safety Report 8888130 (Version 1)
Quarter: 2012Q4

REPORT INFORMATION
  Report Type: 
  Country: US (occurrence: US)
  Receive Date: 20121106
  Receipt Date: 20121106
  Transmission Date: 20130627
  Serious: Yes (Hospitalization, Disabling, Other)
  Sender: FDA-Public Use
  Company Number: US-009507513-1108USA00182

PATIENT

DRUGS (7)
  1. FOSAMAX [Suspect]
     Indication: ARTHRITIS
     Dosage: 5 mg, qd
     Route: 048
     Dates: start: 19980407, end: 19980507
  2. FOSAMAX [Suspect]
     Indication: OSTEOPOROSIS
     Dosage: 10 mg, qd
     Route: 048
     Dates: start: 19980507, end: 20010402
  3. FOSAMAX [Suspect]
     Dosage: 70 mg, QW
     Route: 048
     Dates: start: 20010402, end: 20080115
  4. PREMARIN [Concomitant]
     Dosage: 0.625 mg, qd
     Dates: start: 19980407
  5. CALCIUM (UNSPECIFIED) [Concomitant]
     Indication: OSTEOPOROSIS
     Dosage: 1200 mg, qd
     Dates: start: 19970428
  6. VITAMIN D (UNSPECIFIED) [Concomitant]
     Indication: OSTEOPOROSIS
     Dosage: 400 IU, qd
     Dates: start: 19970428
  7. ALENDRONATE SODIUM [Suspect]
     Dosage: 70 mg, UNK
     Route: 048
     Dates: start: 20080216, end: 20091110

REACTIONS (108)
  - Femur fracture [Unknown]
  - Osteoporosis [Not Recovered/Not Resolved]
  - Stress fracture [Not Recovered/Not Resolved]
  - Femur fracture [Not Recovered/Not Resolved]
  - Low turnover osteopathy [Not Recovered/Not Resolved]
  - Fall [Unknown]
  - Hyperlipidaemia [Unknown]
  - Rheumatoid arthritis [Unknown]
  - Cervical vertebral fracture [Not Recovered/Not Resolved]
  - Osteoarthritis [Unknown]
  - Fall [Unknown]
  - Pneumonia [Unknown]
  - Cardiac failure [Unknown]
  - Off label use [Unknown]
  - Osteoarthritis [Unknown]
  - Emphysema [Unknown]
  - Wound [Unknown]
  - Fracture nonunion [Unknown]
  - Fall [Unknown]
  - Pubis fracture [Unknown]
  - Lumbar vertebral fracture [Unknown]
  - Dizziness [Unknown]
  - Patella fracture [Unknown]
  - Musculoskeletal pain [Unknown]
  - Dehydration [Unknown]
  - Decreased appetite [Unknown]
  - Deep vein thrombosis [Unknown]
  - Ventricular extrasystoles [Unknown]
  - Kyphosis [Unknown]
  - Spinal osteoarthritis [Unknown]
  - Osteoarthritis [Unknown]
  - Gravitational oedema [Unknown]
  - Carpal tunnel syndrome [Unknown]
  - Skin cancer [Unknown]
  - Road traffic accident [Unknown]
  - Laceration [Unknown]
  - Rib fracture [Unknown]
  - Contusion [Unknown]
  - Haematoma [Recovering/Resolving]
  - Insomnia [Unknown]
  - Coronary artery disease [Unknown]
  - Gallbladder disorder [Unknown]
  - Bladder pain [Unknown]
  - Dysuria [Unknown]
  - Constipation [Unknown]
  - Breast cyst [Unknown]
  - Ventricular extrasystoles [Unknown]
  - Ventricular extrasystoles [Unknown]
  - Trigger finger [Unknown]
  - Osteoarthritis [Unknown]
  - Rotator cuff syndrome [Not Recovered/Not Resolved]
  - Joint dislocation [Unknown]
  - Type 2 diabetes mellitus [Unknown]
  - Weight decreased [Unknown]
  - Cellulitis [Unknown]
  - Urinary tract infection [Unknown]
  - Fatigue [Unknown]
  - Bradycardia [Recovering/Resolving]
  - Renal failure chronic [Unknown]
  - Fall [Unknown]
  - Dyspepsia [Unknown]
  - Laceration [Unknown]
  - Chest pain [Unknown]
  - Musculoskeletal chest pain [Unknown]
  - Back pain [Unknown]
  - Renal failure acute [Recovered/Resolved]
  - Dehydration [Unknown]
  - Osteopenia [Unknown]
  - Malaise [Unknown]
  - Fatigue [Unknown]
  - Visual acuity reduced [Unknown]
  - Osteoarthritis [Unknown]
  - Lacunar infarction [Unknown]
  - Goitre [Unknown]
  - Spinal osteoarthritis [Unknown]
  - Scoliosis [Unknown]
  - Fall [Unknown]
  - Scapula fracture [Unknown]
  - Injury [Unknown]
  - Atrial fibrillation [Unknown]
  - Thrombosis [Unknown]
  - Oedema peripheral [Unknown]
  - Blister [Unknown]
  - Blood disorder [Unknown]
  - Ulnar tunnel syndrome [Unknown]
  - Rhinitis allergic [Unknown]
  - Ischaemia [Unknown]
  - Anxiety [Recovering/Resolving]
  - Retrognathia [Unknown]
  - Snoring [Unknown]
  - Hypersomnia [Unknown]
  - Cardiac failure congestive [Unknown]
  - Pneumonia [Unknown]
  - Dementia [Unknown]
  - Gait disturbance [Recovering/Resolving]
  - Upper respiratory tract infection [Unknown]
  - Mitral valve incompetence [Unknown]
  - Arthropathy [Unknown]
  - Arteriosclerosis coronary artery [Unknown]
  - Pericardial effusion [Unknown]
  - Cerebral atrophy [Not Recovered/Not Resolved]
  - Ischaemia [Unknown]
  - Spondylolysis [Unknown]
  - Intervertebral disc degeneration [Unknown]
  - Spinal compression fracture [Unknown]
  - Arthropathy [Unknown]
  - Meningioma [Unknown]
  - Spinal column injury [Unknown]
